FAERS Safety Report 8286845-9 (Version None)
Quarter: 2012Q2

REPORT INFORMATION
  Report Type: 
  Country: None (occurrence: None)
  Receive Date: 20120416
  Receipt Date: 20120403
  Transmission Date: 20120825
  Serious: Yes (Hospitalization, Other)
  Sender: FDA-Public Use
  Company Number: US-ELI_LILLY_AND_COMPANY-US201204001983

PATIENT
  Age: 57 Year
  Sex: Female

DRUGS (7)
  1. SIMVASTATIN [Concomitant]
  2. ASPIRIN                                 /USA/ [Concomitant]
     Dosage: UNK, EACH EVENING
  3. CYMBALTA [Suspect]
     Dosage: 60 MG, QD
     Dates: end: 20120101
  4. LISINOPRIL                              /USA/ [Concomitant]
     Indication: HYPERTENSION
  5. MORPHINE                           /00036301/ [Concomitant]
  6. VICODIN [Concomitant]
     Indication: BREAKTHROUGH PAIN
  7. CYMBALTA [Suspect]
     Indication: BACK PAIN
     Dosage: 20 MG, QD

REACTIONS (9)
  - PLATELET COUNT DECREASED [None]
  - DYSPNOEA [None]
  - HAEMORRHAGE [None]
  - CONTUSION [None]
  - PETECHIAE [None]
  - BREAKTHROUGH PAIN [None]
  - RED BLOOD CELL ABNORMALITY [None]
  - THROMBOCYTOPENIC PURPURA [None]
  - WHITE BLOOD CELL DISORDER [None]
